FAERS Safety Report 20203765 (Version 3)
Quarter: 2022Q1

REPORT INFORMATION
  Report Type: Spontaneous
  Country: CZ (occurrence: CZ)
  Receive Date: 20211219
  Receipt Date: 20220210
  Transmission Date: 20220423
  Serious: Yes (Other)
  Sender: FDA-Public Use
  Company Number: CZ-NOVARTISPH-NVSC2021CZ254626

PATIENT
  Age: 73 Year
  Sex: Female
  Weight: 88.5 kg

DRUGS (32)
  1. ATORVASTATIN CALCIUM [Suspect]
     Active Substance: ATORVASTATIN CALCIUM
     Indication: Dyslipidaemia
     Dosage: 10 MG, 1X/DAY (0-0-1)
     Route: 065
     Dates: start: 201610, end: 202106
  2. TRAZODONE HYDROCHLORIDE [Suspect]
     Active Substance: TRAZODONE HYDROCHLORIDE
     Indication: Product used for unknown indication
     Dosage: 100 MG, DAILY (IN THE EVENING)
     Route: 065
  3. PERINDOPRIL ARGININE [Suspect]
     Active Substance: PERINDOPRIL ARGININE
     Indication: Product used for unknown indication
     Dosage: UNK
     Route: 065
  4. GLICLAZIDE [Concomitant]
     Active Substance: GLICLAZIDE
     Indication: Type 2 diabetes mellitus
     Dosage: 30 MG (1X1)
     Route: 065
     Dates: start: 201610
  5. RAMIPRIL [Concomitant]
     Active Substance: RAMIPRIL
     Indication: Dyslipidaemia
     Dosage: 2.5 MG (1-0-0)
     Route: 065
     Dates: start: 201610
  6. SPIRONOLACTONE [Concomitant]
     Active Substance: SPIRONOLACTONE
     Indication: Product used for unknown indication
     Dosage: 25 MG (1-0-0)
     Route: 065
     Dates: start: 201610
  7. KCL [Concomitant]
     Active Substance: POTASSIUM CHLORIDE
     Indication: Product used for unknown indication
     Dosage: 1 DF (0-1-1) (2 DF, QD)
     Route: 065
     Dates: start: 201610
  8. ALPRAZOLAM [Concomitant]
     Active Substance: ALPRAZOLAM
     Indication: Product used for unknown indication
     Dosage: 0.5 MG (0-0-1)
     Route: 065
     Dates: start: 201610
  9. INSULIN ASPART [Concomitant]
     Active Substance: INSULIN ASPART
     Indication: Type 2 diabetes mellitus
     Dosage: 35-25-25 UNITS
     Route: 065
     Dates: start: 201807, end: 201809
  10. INSULIN ASPART [Concomitant]
     Active Substance: INSULIN ASPART
     Dosage: 18-0-8 U
     Route: 058
     Dates: end: 201809
  11. INSULIN ASPART [Concomitant]
     Active Substance: INSULIN ASPART
     Dosage: UNK
     Route: 065
     Dates: start: 202001, end: 202003
  12. ALLOPURINOL [Concomitant]
     Active Substance: ALLOPURINOL
     Indication: Product used for unknown indication
     Dosage: 100 MG (0-1-0)
     Route: 065
     Dates: start: 201807
  13. GORDIUS [Concomitant]
     Indication: Product used for unknown indication
     Dosage: 300 MG, 3X/DAY
     Route: 065
     Dates: start: 201807
  14. LIXISENATIDE [Concomitant]
     Active Substance: LIXISENATIDE
     Indication: Type 2 diabetes mellitus
     Dosage: SULIQUA 100 U/ML PLUS 33 ?G/ML AT THE DOSE OF 50 UNITS, QD
     Route: 065
     Dates: start: 201809
  15. LIXISENATIDE [Concomitant]
     Active Substance: LIXISENATIDE
     Dosage: SULIQUA 100 U/ML PLUS 33 ?G/ML AT THE DOSE OF 50 UNITS, QD
     Route: 065
  16. LIXISENATIDE [Concomitant]
     Active Substance: LIXISENATIDE
     Dosage: GRADUALLY TO MAX POSSIBLE DOSE OF 60 UNITS, QD
     Route: 065
     Dates: end: 202001
  17. LIXISENATIDE [Concomitant]
     Active Substance: LIXISENATIDE
     Dosage: 50 UNITS WITH MINOR ADJUSTMENTS
     Route: 065
     Dates: start: 2020, end: 2021
  18. LIXISENATIDE [Concomitant]
     Active Substance: LIXISENATIDE
     Dosage: INCREASING THE DOSE TO 56 UNITS DAILY
     Route: 065
     Dates: start: 2021
  19. LIXISENATIDE [Concomitant]
     Active Substance: LIXISENATIDE
     Dosage: 1 DF, QD
     Route: 065
     Dates: start: 202003
  20. INSULIN GLARGINE [Concomitant]
     Active Substance: INSULIN GLARGINE
     Indication: Type 2 diabetes mellitus
     Dosage: COMBINATION OF INSULIN GLARGIN 100 U/ML + LIXISENATID QD
     Route: 065
     Dates: start: 201809
  21. INSULIN GLARGINE [Concomitant]
     Active Substance: INSULIN GLARGINE
     Dosage: SULIQUA 100 U/ML PLUS 33 ?G/ML AT THE DOSE OF 50 UNITS, QD
     Route: 065
  22. INSULIN GLARGINE [Concomitant]
     Active Substance: INSULIN GLARGINE
     Dosage: GRADUALLY INCREASED TO MAXIMUM POSSIBLE DOSE OF 60 UNITS, QD
     Route: 065
     Dates: end: 202001
  23. INSULIN GLARGINE [Concomitant]
     Active Substance: INSULIN GLARGINE
     Dosage: 50 UNITS WITH MINOR ADJUSTMENTS OF THE UNITS ACCORDING TO MEASURED VALUES
     Route: 065
     Dates: start: 2020, end: 2021
  24. INSULIN GLARGINE [Concomitant]
     Active Substance: INSULIN GLARGINE
     Dosage: INCREASING THE DOSE TO 56 UNITS DAILY
     Route: 065
     Dates: start: 2021
  25. GLICLAZIDE [Concomitant]
     Active Substance: GLICLAZIDE
     Indication: Product used for unknown indication
     Dosage: 60 MG, UNKNOWN
     Route: 065
  26. METOPROLOL [Concomitant]
     Active Substance: METOPROLOL
     Indication: Product used for unknown indication
     Dosage: 25 MILLIGRAM DAILY; 25 MG 1-0-0
     Route: 065
     Dates: start: 2016
  27. GLICLAZIDE [Concomitant]
     Active Substance: GLICLAZIDE
     Indication: Type 2 diabetes mellitus
     Dosage: 30 MG, QD
     Route: 065
  28. GLUCOPHAGE [Concomitant]
     Active Substance: METFORMIN HYDROCHLORIDE
     Indication: Type 2 diabetes mellitus
     Dosage: 850 MG (1-1-1)
     Route: 065
     Dates: start: 201610
  29. GLUCOPHAGE [Concomitant]
     Active Substance: METFORMIN HYDROCHLORIDE
     Dosage: 500 MG AFTER DINNER (0-0-1)
     Route: 065
     Dates: start: 201809
  30. GLUCOPHAGE [Concomitant]
     Active Substance: METFORMIN HYDROCHLORIDE
     Dosage: 2550 MILLIGRAM DAILY (850 MG 1-1-1)
     Route: 065
  31. FUROSEMIDE [Concomitant]
     Active Substance: FUROSEMIDE
     Indication: Product used for unknown indication
     Dosage: 125 MG (1/2-0-0) (0.5 DF, QD)
     Route: 065
     Dates: start: 201610, end: 201807
  32. FUROSEMIDE [Concomitant]
     Active Substance: FUROSEMIDE
     Dosage: 62.5 MG, QD
     Route: 065

REACTIONS (3)
  - Drug intolerance [Unknown]
  - Lipids increased [Unknown]
  - Condition aggravated [Unknown]

NARRATIVE: CASE EVENT DATE: 20210601
